FAERS Safety Report 20602575 (Version 10)
Quarter: 2023Q1

REPORT INFORMATION
  Report Type: Spontaneous
  Country: US (occurrence: US)
  Receive Date: 20220316
  Receipt Date: 20230322
  Transmission Date: 20230417
  Serious: No
  Sender: FDA-Public Use
  Company Number: US-PFIZER INC-202200277173

PATIENT
  Age: 69 Year
  Sex: Female

DRUGS (1)
  1. IBRANCE [Suspect]
     Active Substance: PALBOCICLIB
     Indication: Breast cancer female
     Dosage: 125 MG, CYCLIC (1 TAB ORALLY ONCE A DAY X 21 DAYS)
     Route: 048

REACTIONS (12)
  - Neoplasm progression [Unknown]
  - COVID-19 [Unknown]
  - Intervertebral disc degeneration [Unknown]
  - Headache [Unknown]
  - White blood cell count decreased [Unknown]
  - Red blood cell count increased [Unknown]
  - Bone pain [Unknown]
  - Fatigue [Unknown]
  - Pain [Unknown]
  - Insomnia [Unknown]
  - Tooth extraction [Unknown]
  - Stomatitis [Unknown]
